FAERS Safety Report 18325471 (Version 1)
Quarter: 2020Q3

REPORT INFORMATION
  Report Type: Spontaneous
  Country: CN (occurrence: CN)
  Receive Date: 20200929
  Receipt Date: 20200929
  Transmission Date: 20201103
  Serious: Yes (Death, Other)
  Sender: FDA-Public Use
  Company Number: CN-PFIZER INC-2020373606

PATIENT
  Sex: Male

DRUGS (1)
  1. DACOMITINIB [Suspect]
     Active Substance: DACOMITINIB
     Indication: LUNG ADENOCARCINOMA

REACTIONS (8)
  - Pneumonia [Unknown]
  - Muscular weakness [Unknown]
  - Death [Fatal]
  - Neoplasm progression [Unknown]
  - Feeding disorder [Unknown]
  - Strabismus [Unknown]
  - Salivary hypersecretion [Unknown]
  - Vasculitis [Unknown]

NARRATIVE: CASE EVENT DATE: 202007
